FAERS Safety Report 24432781 (Version 5)
Quarter: 2025Q1

REPORT INFORMATION
  Report Type: Report from Study
  Country: CA (occurrence: CA)
  Receive Date: 20241014
  Receipt Date: 20250127
  Transmission Date: 20250408
  Serious: Yes (Hospitalization)
  Sender: ROCHE
  Company Number: CA-ROCHE-10000100579

PATIENT
  Age: 61 Year
  Sex: Female

DRUGS (2)
  1. OCREVUS [Suspect]
     Active Substance: OCRELIZUMAB
     Indication: Relapsing-remitting multiple sclerosis
     Dosage: MORE DOSAGE INFORMATION IS 300 MG AT DAY 0 AND 14, THEN 600 MG EVERY 6 MONTH
     Route: 040
     Dates: start: 20231208
  2. OCREVUS [Suspect]
     Active Substance: OCRELIZUMAB
     Dosage: MORE DOSAGE INFORMATION IS 300 MG AT DAY 0 AND 14, THEN 600 MG EVERY 6 MONTH
     Route: 040

REACTIONS (5)
  - Urinary tract infection [Recovered/Resolved]
  - COVID-19 [Recovered/Resolved]
  - Dental restoration failure [Recovered/Resolved]
  - Off label use [Unknown]
  - Infusion related reaction [Unknown]

NARRATIVE: CASE EVENT DATE: 20240825
